FAERS Safety Report 7424683-7 (Version None)
Quarter: 2011Q2

REPORT INFORMATION
  Report Type: 
  Country: None (occurrence: None)
  Receive Date: 20110419
  Receipt Date: 20110408
  Transmission Date: 20111010
  Serious: Yes (Other)
  Sender: FDA-Public Use
  Company Number: US-MYLANLABS-2011S1007389

PATIENT
  Age: 26 Year
  Sex: Female

DRUGS (3)
  1. AMNESTEEM [Suspect]
     Route: 048
     Dates: start: 20110308, end: 20110407
  2. AMNESTEEM [Suspect]
     Indication: ACNE
     Route: 048
     Dates: start: 20110308, end: 20110407
  3. ORAL CONTRACEPTIVE NOS [Concomitant]
     Indication: ORAL CONTRACEPTION
     Dosage: BIRTH CONTROL
     Route: 048
     Dates: start: 20110101

REACTIONS (2)
  - SUICIDAL IDEATION [None]
  - DEPRESSION [None]
